FAERS Safety Report 5903160-6 (Version None)
Quarter: 2008Q3

REPORT INFORMATION
  Report Type: 
  Country: None (occurrence: None)
  Receive Date: 20080929
  Receipt Date: 20080929
  Transmission Date: 20090109
  Serious: Yes (Life-Threatening)
  Sender: FDA-Public Use
  Company Number: None

PATIENT
  Age: 54 Year
  Sex: Male
  Weight: 97.0698 kg

DRUGS (1)
  1. PROZAC [Suspect]
     Indication: ANXIETY
     Dosage: 25 MG Q D PO
     Route: 048
     Dates: start: 20070101, end: 20080921

REACTIONS (3)
  - HYPERVENTILATION [None]
  - HYPOGLYCAEMIA [None]
  - TACHYCARDIA [None]
